FAERS Safety Report 6923707-0 (Version None)
Quarter: 2010Q3

REPORT INFORMATION
  Report Type: 
  Country: None (occurrence: None)
  Receive Date: 20100813
  Receipt Date: 20100803
  Transmission Date: 20110219
  Serious: Yes (Hospitalization)
  Sender: FDA-Public Use
  Company Number: Z0004199A

PATIENT
  Sex: Female
  Weight: 55 kg

DRUGS (2)
  1. PAZOPANIB [Suspect]
     Dosage: 800MG PER DAY
     Route: 048
     Dates: start: 20100506, end: 20100510
  2. LEVOFLOXACIN [Concomitant]
     Indication: LUNG INFECTION
     Dosage: 500MG PER DAY
     Route: 048
     Dates: start: 20100508, end: 20100509

REACTIONS (1)
  - SINUS BRADYCARDIA [None]
